FAERS Safety Report 7294220-9 (Version None)
Quarter: 2011Q1

REPORT INFORMATION
  Report Type: 
  Country: None (occurrence: None)
  Receive Date: 20110215
  Receipt Date: 20110209
  Transmission Date: 20110831
  Serious: Yes (Hospitalization)
  Sender: FDA-Public Use
  Company Number: US-JNJCH-2011003704

PATIENT
  Sex: Female

DRUGS (1)
  1. VISINE TOTALITY MULTI-SYMPTOM RELIEF [Suspect]
     Indication: ACCIDENTAL EXPOSURE
     Dosage: TEXT:ONCE
     Route: 048

REACTIONS (2)
  - SHOCK [None]
  - ACCIDENTAL EXPOSURE [None]
